FAERS Safety Report 14081727 (Version 1)
Quarter: 2017Q4

REPORT INFORMATION
  Report Type: Spontaneous
  Country: US (occurrence: US)
  Receive Date: 20171012
  Receipt Date: 20171012
  Transmission Date: 20180321
  Serious: No
  Sender: FDA-Public Use
  Company Number: US-MYLANLABS-2017M1042099

PATIENT
  Age: 50 Year
  Sex: Female
  Weight: 72.56 kg

DRUGS (1)
  1. ESTRADIOL TRANSDERMAL SYSTEM [Suspect]
     Active Substance: ESTRADIOL
     Indication: MENOPAUSE
     Dosage: 0.05 MG, QD, CHANGE TW
     Route: 062

REACTIONS (2)
  - Application site rash [Not Recovered/Not Resolved]
  - Application site scar [Not Recovered/Not Resolved]

NARRATIVE: CASE EVENT DATE: 201706
